FAERS Safety Report 14410069 (Version 5)
Quarter: 2020Q2

REPORT INFORMATION
  Report Type: Spontaneous
  Country: US (occurrence: US)
  Receive Date: 20180119
  Receipt Date: 20200507
  Transmission Date: 20200713
  Serious: No
  Sender: FDA-Public Use
  Company Number: US-PFIZER INC-2018023320

PATIENT
  Age: 66 Year
  Sex: Female

DRUGS (2)
  1. GENOTROPIN [Suspect]
     Active Substance: SOMATROPIN
     Indication: GROWTH HORMONE DEFICIENCY
     Dosage: 0.2 MG, DAILY
  2. GENOTROPIN [Suspect]
     Active Substance: SOMATROPIN
     Dosage: 5 MG

REACTIONS (13)
  - General physical health deterioration [Unknown]
  - Confusional state [Unknown]
  - Visual impairment [Unknown]
  - Mean platelet volume increased [Unknown]
  - Monocyte count decreased [Unknown]
  - Intentional dose omission [Unknown]
  - Mean cell haemoglobin concentration decreased [Unknown]
  - Lymphocyte count decreased [Unknown]
  - Red cell distribution width increased [Unknown]
  - Immunoglobulins increased [Unknown]
  - Neutrophil count increased [Unknown]
  - Blood thyroid stimulating hormone decreased [Unknown]
  - Glomerular filtration rate decreased [Unknown]

NARRATIVE: CASE EVENT DATE: 20180729
